FAERS Safety Report 6211462-1 (Version None)
Quarter: 2009Q2

REPORT INFORMATION
  Report Type: 
  Country: None (occurrence: None)
  Receive Date: 20090522
  Receipt Date: 20090403
  Transmission Date: 20091009
  Serious: No
  Sender: FDA-Public Use
  Company Number: 8044524

PATIENT
  Age: 38 Year
  Sex: Female

DRUGS (5)
  1. CIMZIA [Suspect]
     Indication: CROHN'S DISEASE
     Dosage: 400 MG SC
     Route: 058
     Dates: start: 20090320
  2. LEVOTHYROXINE SODIUM [Concomitant]
  3. DOXEPIN [Concomitant]
  4. ASACOL [Concomitant]
  5. LOPERAMIDE HYDROCHLORIDE [Concomitant]

REACTIONS (1)
  - BRONCHITIS [None]
